FAERS Safety Report 7639107-4 (Version None)
Quarter: 2011Q3

REPORT INFORMATION
  Report Type: 
  Country: None (occurrence: None)
  Receive Date: 20110726
  Receipt Date: 20110726
  Transmission Date: 20111222
  Serious: Yes (Hospitalization)
  Sender: FDA-Public Use
  Company Number: None

PATIENT
  Sex: Female
  Weight: 59 kg

DRUGS (1)
  1. NUVARING [Suspect]

REACTIONS (2)
  - TOXIC SHOCK SYNDROME [None]
  - STREPTOCOCCAL SEPSIS [None]
